FAERS Safety Report 16524610 (Version 1)
Quarter: 2019Q3

REPORT INFORMATION
  Report Type: Spontaneous
  Country: US (occurrence: US)
  Receive Date: 20190702
  Receipt Date: 20190702
  Transmission Date: 20191004
  Serious: Yes (Other)
  Sender: FDA-Public Use
  Company Number: US-ROCHE-2247150

PATIENT
  Age: 71 Year
  Sex: Female
  Weight: 88.53 kg

DRUGS (1)
  1. CELLCEPT [Suspect]
     Active Substance: MYCOPHENOLATE MOFETIL\MYCOPHENOLATE MOFETIL HYDROCHLORIDE
     Indication: DERMATITIS
     Dosage: 2 TABLETS 500 MG EACH= 1000MG TWICE A DAY
     Route: 048
     Dates: start: 2015, end: 20190114

REACTIONS (3)
  - Intentional product use issue [Unknown]
  - Off label use [Unknown]
  - Ovarian cancer [Not Recovered/Not Resolved]

NARRATIVE: CASE EVENT DATE: 20171215
